FAERS Safety Report 7214647-0 (Version None)
Quarter: 2011Q1

REPORT INFORMATION
  Report Type: 
  Country: None (occurrence: None)
  Receive Date: 20110107
  Receipt Date: 20101217
  Transmission Date: 20110831
  Serious: No
  Sender: FDA-Public Use
  Company Number: US-B.I. PHARMACEUTICALS,INC./RIDGEFIELD-2010-BP-15111BP

PATIENT
  Sex: Male

DRUGS (8)
  1. OMEPRAZOLE [Concomitant]
     Indication: GASTROOESOPHAGEAL REFLUX DISEASE
  2. LYRICA [Concomitant]
     Indication: PAIN
  3. PRADAXA [Suspect]
     Indication: ATRIAL FIBRILLATION
     Dosage: 300 MG
     Route: 048
     Dates: start: 20101206
  4. VERAPAMIL [Concomitant]
     Indication: ATRIAL FIBRILLATION
  5. RYTHMOL [Concomitant]
     Indication: ATRIAL FIBRILLATION
  6. COUMADIN [Concomitant]
     Indication: ATRIAL FIBRILLATION
  7. SKELAXIN [Concomitant]
     Indication: NERVE INJURY
  8. AMBIEN ER [Concomitant]
     Indication: SLEEP DISORDER

REACTIONS (4)
  - FATIGUE [None]
  - NAUSEA [None]
  - DYSPEPSIA [None]
  - INSOMNIA [None]
